FAERS Safety Report 14807766 (Version 1)
Quarter: 2018Q2

REPORT INFORMATION
  Report Type: Spontaneous
  Country: CL (occurrence: CL)
  Receive Date: 20180425
  Receipt Date: 20180425
  Transmission Date: 20180711
  Serious: Yes (Death, Other)
  Sender: FDA-Public Use
  Company Number: CL-TEVA-2018-CL-883228

PATIENT

DRUGS (1)
  1. ADINE (NOREPINEPHRINE) [Suspect]
     Active Substance: NOREPINEPHRINE
     Indication: VASOCONSTRICTION
     Dosage: ADINE 4MG/4ML
     Route: 042
     Dates: start: 20180119

REACTIONS (2)
  - Extremity necrosis [Unknown]
  - Drug ineffective [Fatal]

NARRATIVE: CASE EVENT DATE: 20180119
